FAERS Safety Report 6403826-8 (Version None)
Quarter: 2009Q4

REPORT INFORMATION
  Report Type: 
  Country: None (occurrence: None)
  Receive Date: 20091016
  Receipt Date: 20091006
  Transmission Date: 20100525
  Serious: Yes (Hospitalization)
  Sender: FDA-Public Use
  Company Number: FR-BAYER-200935384GPV

PATIENT
  Age: 17 Year
  Sex: Female

DRUGS (5)
  1. YASMIN [Suspect]
     Indication: DRUG USE FOR UNKNOWN INDICATION
     Route: 048
     Dates: start: 20080501, end: 20090617
  2. CEFIXIME 200 [Suspect]
     Indication: ACUTE TONSILLITIS
     Route: 048
     Dates: start: 20090412, end: 20090415
  3. AMOXICILLINE BASE [Suspect]
     Indication: ACUTE TONSILLITIS
     Route: 048
     Dates: start: 20090415
  4. NIFLURIL [Suspect]
     Indication: ACUTE TONSILLITIS
     Route: 048
     Dates: start: 20090415
  5. GARDASIL [Suspect]
     Route: 030

REACTIONS (7)
  - ARTHRALGIA [None]
  - ERYTHEMA [None]
  - FACE OEDEMA [None]
  - LOCALISED OEDEMA [None]
  - POLYARTERITIS NODOSA [None]
  - PYREXIA [None]
  - SKIN LESION [None]
